FAERS Safety Report 7405053-4 (Version None)
Quarter: 2011Q1

REPORT INFORMATION
  Report Type: 
  Country: None (occurrence: None)
  Receive Date: 20110301
  Receipt Date: 20100722
  Transmission Date: 20110831
  Serious: Yes (Hospitalization, Other)
  Sender: FDA-Public Use
  Company Number: RB-13395-2010

PATIENT
  Sex: Male

DRUGS (2)
  1. SUBOXONE [Suspect]
     Indication: DRUG DEPENDENCE
     Dosage: (12 MG TRANSPLACENTAL)
     Route: 064
     Dates: start: 20090905, end: 20100501
  2. SUBUTEX [Suspect]
     Indication: DRUG DEPENDENCE
     Dosage: (12 MG TRANSPLACENTAL)
     Route: 064
     Dates: start: 20100501, end: 20100618

REACTIONS (1)
  - DRUG EXPOSURE DURING PREGNANCY [None]
